FAERS Safety Report 15667700 (Version 3)
Quarter: 2018Q4

REPORT INFORMATION
  Report Type: Spontaneous
  Country: TW (occurrence: TW)
  Receive Date: 20181128
  Receipt Date: 20181227
  Transmission Date: 20190205
  Serious: Yes (Hospitalization)
  Sender: FDA-Public Use
  Company Number: TW-PFIZER INC-2018485545

PATIENT
  Age: 50 Year
  Sex: Female

DRUGS (4)
  1. ARHEUMA [Concomitant]
     Dosage: 20 MG, QD
  2. GENIQUIN [Concomitant]
     Dosage: 400 MG, QD
  3. SALAZINE [Concomitant]
     Active Substance: SULFASALAZINE
     Dosage: 1 G, QD
  4. XELJANZ [Suspect]
     Active Substance: TOFACITINIB CITRATE
     Indication: RHEUMATOID ARTHRITIS
     Dosage: 5 MG, MG (ONE IN A SINGLE DAY AND TWO IN A DOUBLE DAY; 3#/Q2D)
     Route: 048
     Dates: start: 20180903, end: 2018

REACTIONS (2)
  - Product use issue [Unknown]
  - Pleural effusion [Recovered/Resolved]

NARRATIVE: CASE EVENT DATE: 20180903
